FAERS Safety Report 16023464 (Version 1)
Quarter: 2019Q1

REPORT INFORMATION
  Report Type: Spontaneous
  Country: US (occurrence: US)
  Receive Date: 20190301
  Receipt Date: 20190301
  Transmission Date: 20190418
  Serious: No
  Sender: FDA-Public Use
  Company Number: US-BAYER-2019-043264

PATIENT
  Age: 78 Year
  Sex: Female
  Weight: 62 kg

DRUGS (8)
  1. CITRACAL MAXIMUM PLUS [Suspect]
     Active Substance: CALCIUM CITRATE\CHOLECALCIFEROL
     Indication: NUTRITIONAL SUPPLEMENTATION
     Dosage: 1 DF, BID
     Route: 048
  2. MIRALAX [Suspect]
     Active Substance: POLYETHYLENE GLYCOL 3350
     Indication: GASTROINTESTINAL DISORDER
     Dosage: UNK
     Route: 048
     Dates: start: 20190216, end: 20190224
  3. ALIGN [Concomitant]
     Active Substance: BIFIDOBACTERIUM LONGUM SUBSP. INFANTIS
  4. MIRALAX [Suspect]
     Active Substance: POLYETHYLENE GLYCOL 3350
     Indication: GASTROINTESTINAL DISORDER
     Dosage: 0.25 DF, ONCE
     Route: 048
     Dates: start: 20190226, end: 20190226
  5. NATURE MADE VITAMIN C [Concomitant]
  6. CULTURELLE [Concomitant]
     Active Substance: LACTOBACILLUS RHAMNOSUS
  7. KIRKLAND SIGNATURE SUGAR FREE IRON FREE CHILDREN^S MULTIVITAMIN [Concomitant]
  8. MIRALAX [Suspect]
     Active Substance: POLYETHYLENE GLYCOL 3350
     Indication: GASTROINTESTINAL DISORDER
     Dosage: 0.5 DF, ONCE
     Route: 048
     Dates: start: 20190225, end: 20190225

REACTIONS (3)
  - Diarrhoea [Recovered/Resolved]
  - Product prescribing error [Unknown]
  - Underdose [None]

NARRATIVE: CASE EVENT DATE: 20190215
